FAERS Safety Report 18442770 (Version 1)
Quarter: 2020Q4

REPORT INFORMATION
  Report Type: Spontaneous
  Country: ES (occurrence: ES)
  Receive Date: 20201029
  Receipt Date: 20201029
  Transmission Date: 20210114
  Serious: Yes (Other)
  Sender: FDA-Public Use
  Company Number: ES-AMERICAN REGENT INC-2020002276

PATIENT
  Age: 73 Year
  Sex: Female

DRUGS (10)
  1. CIANOCOBALAMINA [Concomitant]
     Indication: ANAEMIA
     Dosage: UNK
     Route: 030
     Dates: start: 20200429, end: 20200504
  2. OMEPRAZOL                          /00661201/ [Concomitant]
     Active Substance: OMEPRAZOLE
     Indication: GASTRITIS PROPHYLAXIS
     Dosage: 20 MILLIGRAM (20 MG,1 IN 1 D)
     Route: 048
     Dates: start: 20200428
  3. SIMVASTATINA [Concomitant]
     Active Substance: SIMVASTATIN
     Indication: CHOLESTEROSIS
     Dosage: 40 MILLIGRAM, (40 MG,1 IN 1 D)
     Route: 048
     Dates: start: 2019
  4. ENOXAPARINA SODICA [Concomitant]
     Active Substance: ENOXAPARIN SODIUM
     Indication: THROMBOSIS PROPHYLAXIS
     Dosage: 40 MILLIGRAM (40 MG,1 IN 1 D)
     Route: 058
     Dates: start: 20200428
  5. HIERRO                             /00023501/ [Concomitant]
     Indication: IRON DEFICIENCY ANAEMIA
     Dosage: 1 GRAM (1 GM,1 IN 1 D)
     Route: 042
     Dates: start: 20200429, end: 20200429
  6. FERINJECT [Suspect]
     Active Substance: FERRIC CARBOXYMALTOSE
     Indication: IRON DEFICIENCY ANAEMIA
     Dosage: 1 GM (1 GM,1 IN 1 TOTAL)
     Route: 042
     Dates: start: 20200506, end: 20200506
  7. FITOMENADIONA [Concomitant]
     Indication: VITAMIN K DEFICIENCY
     Dosage: 20 MILLIGRAM (10 MG,1 IN 12 HR)
     Route: 042
     Dates: start: 20200505
  8. METAMIZOLE [Concomitant]
     Active Substance: METAMIZOLE
     Indication: ANALGESIC THERAPY
     Dosage: 1725 MG (575 MG,1 IN 8 HR)
     Route: 048
     Dates: start: 20200429
  9. FOLIC ACID. [Concomitant]
     Active Substance: FOLIC ACID
     Indication: FOLATE DEFICIENCY
     Dosage: 5 MILLIGRAM (5 MG,1 IN 1 D)
     Route: 048
     Dates: start: 20200429
  10. FITOMENADIONA [Concomitant]
     Dosage: 30 MG (10 MG,1 IN 8 HR)
     Route: 042
     Dates: start: 20200429, end: 20200430

REACTIONS (1)
  - Bronchospasm [Recovered/Resolved]

NARRATIVE: CASE EVENT DATE: 20200506
